FAERS Safety Report 6295191-4 (Version None)
Quarter: 2009Q3

REPORT INFORMATION
  Report Type: 
  Country: None (occurrence: None)
  Receive Date: 20090729
  Receipt Date: 20090716
  Transmission Date: 20100115
  Serious: Yes (Other)
  Sender: FDA-Public Use
  Company Number: 319900

PATIENT
  Age: 5 Year
  Sex: Male

DRUGS (3)
  1. CARBOPLATIN [Suspect]
     Indication: GLIOMA
     Dosage: 430 MG, 1 DAY
     Dates: start: 20090612
  2. VINCRISTINE [Suspect]
     Indication: GLIOMA
     Dosage: 1.2 MG, 1 DAY, INTRAVENOUS
     Route: 042
     Dates: start: 20090612
  3. ZOFRAN [Concomitant]

REACTIONS (3)
  - COUGH [None]
  - DRUG HYPERSENSITIVITY [None]
  - FLUSHING [None]
